FAERS Safety Report 26179804 (Version 1)
Quarter: 2025Q4

REPORT INFORMATION
  Report Type: Spontaneous
  Country: US (occurrence: None)
  Receive Date: 20251218
  Receipt Date: 20251218
  Transmission Date: 20260117
  Serious: Yes (Disabling)
  Sender: FDA-CTU
  Company Number: None

PATIENT
  Age: 68 Year
  Sex: Female

DRUGS (1)
  1. ALENDRONATE [Suspect]
     Active Substance: ALENDRONATE SODIUM
     Dosage: OTHER FREQUENCY : WEEKLY;
     Route: 048

REACTIONS (2)
  - Pain in jaw [None]
  - Tooth loss [None]

NARRATIVE: CASE EVENT DATE: 20251218
